FAERS Safety Report 7184668-5 (Version None)
Quarter: 2010Q4

REPORT INFORMATION
  Report Type: 
  Country: None (occurrence: None)
  Receive Date: 20101222
  Receipt Date: 20101213
  Transmission Date: 20110411
  Serious: Yes (Other)
  Sender: FDA-Public Use
  Company Number: JP-ASTRAZENECA-2010SE52960

PATIENT
  Age: 43 Year
  Sex: Female
  Weight: 47 kg

DRUGS (6)
  1. DIPRIVAN [Suspect]
     Indication: INDUCTION AND MAINTENANCE OF ANAESTHESIA
     Dosage: 20 MG - 4 MG/KG/HR
     Route: 042
     Dates: start: 20090902, end: 20090902
  2. DORMICUM [Concomitant]
     Indication: PREMEDICATION
     Route: 030
     Dates: start: 20090902, end: 20090902
  3. ATROPINE [Concomitant]
     Indication: PREMEDICATION
     Route: 030
     Dates: start: 20090902, end: 20090902
  4. DROPERIDOL [Concomitant]
     Route: 042
     Dates: start: 20090902, end: 20090902
  5. ULTIVA [Concomitant]
     Indication: ANALGESIC THERAPY
     Dosage: 0.25MG/KG/HR
     Route: 042
     Dates: start: 20090902, end: 20090902
  6. ESLAX [Concomitant]
     Indication: HYPOTONIA
     Route: 042
     Dates: start: 20090902, end: 20090902

REACTIONS (1)
  - ASTHMA [None]
